FAERS Safety Report 24680109 (Version 1)
Quarter: 2024Q4

REPORT INFORMATION
  Report Type: Spontaneous
  Country: US (occurrence: US)
  Receive Date: 20241129
  Receipt Date: 20241129
  Transmission Date: 20250114
  Serious: No
  Sender: BRACCO
  Company Number: US-BRACCO-2023US05700

PATIENT
  Sex: Female

DRUGS (3)
  1. LUMASON [Suspect]
     Active Substance: SULFUR HEXAFLUORIDE
     Indication: Diagnostic procedure
     Dosage: 1 ML, SINGLE
     Route: 040
     Dates: start: 20231030, end: 20231030
  2. LUMASON [Suspect]
     Active Substance: SULFUR HEXAFLUORIDE
     Indication: Diagnostic procedure
     Dosage: 1 ML, SINGLE
     Route: 040
     Dates: start: 20231030, end: 20231030
  3. LUMASON [Suspect]
     Active Substance: SULFUR HEXAFLUORIDE
     Indication: Diagnostic procedure
     Dosage: 1 ML, SINGLE
     Route: 040
     Dates: start: 20231030, end: 20231030

REACTIONS (1)
  - Vomiting [Recovered/Resolved]

NARRATIVE: CASE EVENT DATE: 20231030
